FAERS Safety Report 12185025 (Version 1)
Quarter: 2016Q1

REPORT INFORMATION
  Report Type: Spontaneous
  Country: JP (occurrence: JP)
  Receive Date: 20160316
  Receipt Date: 20160316
  Transmission Date: 20160526
  Serious: Yes (Death, Life-Threatening)
  Sender: FDA-Public Use
  Company Number: JP-BIOCRYST PHARMACEUTICALS, INC.-2016BCR00063

PATIENT
  Age: 87 Year
  Sex: Male

DRUGS (9)
  1. SPIRONOLACTONE. [Concomitant]
     Active Substance: SPIRONOLACTONE
     Indication: CARDIAC FAILURE CHRONIC
     Dosage: 25 MG, 1X/DAY
     Route: 048
     Dates: start: 20160127, end: 20160210
  2. MAINTATE [Concomitant]
     Active Substance: BISOPROLOL FUMARATE
     Indication: ATRIAL FIBRILLATION
     Dosage: 1.25 MG, 1X/DAY
     Route: 048
     Dates: start: 20160120, end: 20160210
  3. SOLDEM 3A [Concomitant]
     Active Substance: CARBOHYDRATES\POTASSIUM CHLORIDE\SODIUM CHLORIDE\SODIUM LACTATE
     Dosage: 500 ML, 1X/DAY
     Route: 042
     Dates: start: 20160209, end: 20160209
  4. DOPS OD [Concomitant]
     Active Substance: DROXIDOPA
     Indication: ORTHOSTATIC HYPOTENSION
     Dosage: 2700 MG, 1X/DAY
     Route: 048
     Dates: start: 20151209, end: 20160210
  5. ZOSYN [Concomitant]
     Active Substance: PIPERACILLIN SODIUM\TAZOBACTAM SODIUM
     Indication: PNEUMONIA
     Dosage: 4.50 G, 1X/DAY
     Route: 042
     Dates: start: 20160209, end: 20160216
  6. LUPRAC [Concomitant]
     Active Substance: TORSEMIDE
     Indication: CARDIAC FAILURE CHRONIC
     Dosage: 4 MG, 1X/DAY
     Route: 048
     Dates: start: 20160126, end: 20160210
  7. SOLULACT [Concomitant]
     Dosage: 500 ML, 1X/DAY
     Route: 042
     Dates: start: 20160209, end: 20160209
  8. RAPIACTA [Suspect]
     Active Substance: PERAMIVIR
     Indication: INFLUENZA
     Dosage: 300 MG, ONCE
     Route: 042
     Dates: start: 20160209, end: 20160209
  9. CLOPIDOGREL [Concomitant]
     Active Substance: CLOPIDOGREL BISULFATE
     Indication: ATRIAL FIBRILLATION
     Dosage: 75 MG, 1X/DAY
     Route: 048
     Dates: start: 20151209, end: 20160210

REACTIONS (2)
  - Blood creatine phosphokinase increased [Recovering/Resolving]
  - Multiple organ dysfunction syndrome [Fatal]

NARRATIVE: CASE EVENT DATE: 20150213
